FAERS Safety Report 11450483 (Version 1)
Quarter: 2015Q3

REPORT INFORMATION
  Report Type: Spontaneous
  Country: US (occurrence: US)
  Receive Date: 20150903
  Receipt Date: 20150903
  Transmission Date: 20151125
  Serious: Yes (Hospitalization)
  Sender: FDA-Public Use
  Company Number: US-ROCHE-1073620

PATIENT
  Age: 49 Year
  Sex: Male

DRUGS (2)
  1. TELAPREVIR [Suspect]
     Active Substance: TELAPREVIR
     Indication: PRODUCT USED FOR UNKNOWN INDICATION
  2. PEGASYS [Suspect]
     Active Substance: PEGINTERFERON ALFA-2A
     Indication: PRODUCT USED FOR UNKNOWN INDICATION
     Route: 065

REACTIONS (4)
  - White blood cell count decreased [Unknown]
  - Rash [Unknown]
  - Pain [Unknown]
  - Pruritus [Unknown]
